FAERS Safety Report 10059108 (Version 2)
Quarter: 2014Q2

REPORT INFORMATION
  Report Type: Report from Study
  Country: FR (occurrence: FR)
  Receive Date: 20140404
  Receipt Date: 20140404
  Transmission Date: 20141212
  Serious: Yes (Death, Other)
  Sender: FDA-Public Use
  Company Number: FR-BRISTOL-MYERS SQUIBB COMPANY-16780983

PATIENT
  Age: 87 Year
  Sex: Female

DRUGS (1)
  1. ORENCIA [Suspect]
     Dates: start: 20080616

REACTIONS (2)
  - Death [Fatal]
  - Bronchopneumonia [Unknown]
